FAERS Safety Report 9423770 (Version 1)
Quarter: 2013Q3

REPORT INFORMATION
  Report Type: Spontaneous
  Country: US (occurrence: US)
  Receive Date: 20130728
  Receipt Date: 20130728
  Transmission Date: 20140515
  Serious: No
  Sender: FDA-Public Use
  Company Number: US-JNJFOC-20130518603

PATIENT
  Sex: Female

DRUGS (8)
  1. IMODIUM A-D [Suspect]
     Indication: PROPHYLAXIS
     Dosage: HALF TABLET
     Route: 048
     Dates: start: 2012
  2. IMODIUM A-D [Suspect]
     Indication: DEFAECATION URGENCY
     Dosage: HALF TABLET
     Route: 048
     Dates: start: 2012
  3. ARAVA [Concomitant]
     Indication: RHEUMATOID ARTHRITIS
     Route: 065
  4. MOBIC [Concomitant]
     Indication: RHEUMATOID ARTHRITIS
     Route: 065
  5. SYNTHROID [Concomitant]
     Indication: THYROID DISORDER
     Route: 065
  6. PROCARDIA XL [Concomitant]
     Indication: RHEUMATOID ARTHRITIS
     Route: 065
  7. PLAQUENIL [Concomitant]
     Indication: SYSTEMIC LUPUS ERYTHEMATOSUS
     Route: 065
  8. PREDNISONE [Concomitant]
     Route: 065

REACTIONS (3)
  - Off label use [Unknown]
  - Intentional drug misuse [Unknown]
  - Wrong technique in drug usage process [Unknown]
